FAERS Safety Report 9294869 (Version 1)
Quarter: 2013Q1

REPORT INFORMATION
  Report Type: Spontaneous
  Country: US (occurrence: None)
  Receive Date: 20121227
  Receipt Date: 20121227
  Transmission Date: 20140127
  Serious: Yes (Death)
  Sender: FDA-Public Use
  Company Number: PHEH2012US009416

PATIENT
  Age: 59 Year
  Sex: Male
  Weight: 78.9 kg

DRUGS (26)
  1. EXJADE [Suspect]
     Indication: IRON OVERLOAD
  2. SODIUM CHLORIDE (SODIUM CHLORID) [Concomitant]
  3. GARLIC (ALLIUM SATIVUM) [Concomitant]
  4. B12(CYANOCOBALAMIN-TANNIN COMPLEX) [Concomitant]
  5. OMEGA(CARBINOXAMINE MALEATE) [Concomitant]
  6. VITAMIN D 3 (COLECALCIFEROL) [Concomitant]
  7. BENADRYL (AMMONIUM CHLORIDE, DIPHENHYDRAMINE HYDROCHLORIDE, MENTHOL, SODIUM CITRATE) [Concomitant]
  8. VITAMIN C [Concomitant]
  9. VITAMIN D (TOCOPHEROL) [Concomitant]
  10. MIRALAZ(MACROGOL) POWDER [Concomitant]
  11. ACETAMINOPEN (PARACETAMOL( [Concomitant]
  12. ARZERA [Concomitant]
  13. METHADONE(METHADONE) [Concomitant]
  14. AMITRIPTYLINE(AMITRIPTYLINE) [Concomitant]
  15. FOLIC ACID(FOLIC ACID) [Concomitant]
  16. KLOR-CON(POTASSIUM CHLORIDE) [Concomitant]
  17. ZYRTEC(CETIRIZINE HYDROCHLORIDE) [Concomitant]
  18. MEGACE(MEGESTROL ACETATE) [Concomitant]
  19. BOOST(BIOTIN, CARBHOHYDRATES NOS, FATS NOS, MINERALS NOS, POTASSIUM, PROTEINS NOS, SODIUM, VITAMINS NOS) [Concomitant]
  20. TART CHERRY [Concomitant]
  21. BACTRIM(SULFAMETHOXAZOLE, TRIMTHOPRIM) [Concomitant]
  22. MENTAX(BUTENAFINE HYDROCHLORIDE) [Concomitant]
  23. PROCHLORPERAZINE(PROCHLORPERAZINE) [Concomitant]
  24. DUREZOL(DIFLUPREDNATE) [Concomitant]
  25. VIGAMOX(MOXIFLOXACIN HYDROCHLORIDE) [Concomitant]
  26. MURO 128(SODIUM CHLORIDE) [Concomitant]

REACTIONS (5)
  - Hepatic failure [None]
  - Confusional state [None]
  - Balance disorder [None]
  - Diarrhoea [None]
  - Hepatic enzyme increased [None]
